FAERS Safety Report 6373613-8 (Version None)
Quarter: 2009Q3

REPORT INFORMATION
  Report Type: 
  Country: None (occurrence: None)
  Receive Date: 20090924
  Receipt Date: 20090909
  Transmission Date: 20100115
  Serious: Yes (Hospitalization)
  Sender: FDA-Public Use
  Company Number: US-PFIZER INC-2009257801

PATIENT
  Sex: Male
  Weight: 82.086 kg

DRUGS (15)
  1. SUNITINIB MALATE [Suspect]
     Indication: RENAL CELL CARCINOMA
     Dosage: 50 MG, 1X/DAY
     Route: 048
     Dates: start: 20090324
  2. TARCEVA [Suspect]
     Indication: RENAL CELL CARCINOMA
     Dosage: 150 MG, 1X/DAY
     Route: 048
     Dates: start: 20090324
  3. LORAZEPAM [Concomitant]
     Dosage: 1 T Q6H PANX
     Route: 048
  4. OXYCODONE [Concomitant]
     Dosage: 5 MG, 1-2TAB, Q2-4H PP
     Route: 048
  5. BUPROPION HYDROCHLORIDE [Concomitant]
     Dosage: 150MG, 1TAB EVERY BEDTIME
     Route: 048
  6. SINEMET [Concomitant]
     Dosage: 50-200MG 1 TABLET EVERY DAY AT BEDTIME
     Route: 048
  7. PROCHLORPERAZINE MALEATE [Concomitant]
     Indication: VOMITING
     Dosage: 10MG, EVERY 6 HOURS IF NEEDED
     Route: 048
  8. DOCUSATE SODIUM [Concomitant]
     Dosage: 250MG, 1-2 CPS ONCE DAILY AS NEEDED
     Route: 048
  9. FIBERCON [Concomitant]
     Dosage: 625 MG
     Route: 048
  10. VIAGRA [Concomitant]
     Dosage: 100MG, 1 T APPROXIMATELY 1 HOUR PRIOR TO SEXUAL ACTIVITY
     Route: 048
  11. ONDANSETRON HYDROCHLORIDE [Concomitant]
     Dosage: 8 MG, ONE TABLET TWICE A DAY IF NEEDED
     Route: 048
  12. MORPHINE [Concomitant]
     Dosage: 15MG SR TAB, TWO TABLETS EVERY 8 HOURS
     Route: 048
  13. CYCLOBENZAPRINE [Concomitant]
     Dosage: 10MG, ONE TABLET AT BEDTIME IF NEEDED
     Route: 048
  14. METROGEL [Concomitant]
     Dosage: 0.75%, 3 TIMES DAILY
     Route: 061
  15. SIMVASTATIN [Concomitant]
     Dosage: 20MG, ONE TABLET EVERY DAY WITH EVENING CHOLESTEROL
     Route: 048

REACTIONS (1)
  - RENAL FAILURE ACUTE [None]
